FAERS Safety Report 23883494 (Version 2)
Quarter: 2024Q2

REPORT INFORMATION
  Report Type: Spontaneous
  Country: CH (occurrence: CH)
  Receive Date: 20240522
  Receipt Date: 20240529
  Transmission Date: 20240716
  Serious: Yes (Hospitalization, Other)
  Sender: FDA-Public Use
  Company Number: None

PATIENT
  Age: 53 Year
  Sex: Male

DRUGS (8)
  1. IBUPROFEN [Suspect]
     Active Substance: IBUPROFEN
     Indication: Antiinflammatory therapy
     Dosage: UNK
     Route: 065
  2. IBUPROFEN [Suspect]
     Active Substance: IBUPROFEN
     Indication: Infection
  3. IBUPROFEN [Suspect]
     Active Substance: IBUPROFEN
     Indication: Bursitis
  4. AMOXICILLIN\CLAVULANIC ACID [Suspect]
     Active Substance: AMOXICILLIN\CLAVULANIC ACID
     Indication: Bursitis
     Dosage: UNK
     Route: 065
  5. AMOXICILLIN\CLAVULANIC ACID [Suspect]
     Active Substance: AMOXICILLIN\CLAVULANIC ACID
     Indication: Infection
  6. METAMIZOLE [Suspect]
     Active Substance: METAMIZOLE
     Indication: Antiinflammatory therapy
     Dosage: UNK
     Route: 065
  7. METAMIZOLE [Suspect]
     Active Substance: METAMIZOLE
     Indication: Bursitis
  8. METAMIZOLE [Suspect]
     Active Substance: METAMIZOLE
     Indication: Infection

REACTIONS (12)
  - Respiratory distress [Recovered/Resolved]
  - Liver disorder [Recovered/Resolved]
  - Nephropathy [Recovered/Resolved]
  - Splenomegaly [Recovered/Resolved]
  - Lymphadenopathy mediastinal [Recovered/Resolved]
  - Hilar lymphadenopathy [Recovered/Resolved]
  - Cholestasis [Recovered/Resolved]
  - Condition aggravated [Recovered/Resolved]
  - Proteinuria [Recovered/Resolved]
  - Pyrexia [Recovered/Resolved]
  - Acute kidney injury [Recovered/Resolved]
  - Drug reaction with eosinophilia and systemic symptoms [Recovered/Resolved]
